FAERS Safety Report 4669499-X (Version None)
Quarter: 2005Q2

REPORT INFORMATION
  Report Type: 
  Country: None (occurrence: None)
  Receive Date: 20050520
  Receipt Date: 20050506
  Transmission Date: 20051028
  Serious: Yes (Other)
  Sender: FDA-Public Use
  Company Number: 2005071350

PATIENT
  Age: 2 Year
  Sex: Male
  Weight: 14.0615 kg

DRUGS (1)
  1. CHILDREN'S PEDIACARE LONG ACTING COUGH PLUS COLD (PSEUDOEPHEDRINE, DEX [Suspect]
     Indication: COUGH
     Dosage: 1 TSP TWICE (7 HOURS APART), ORAL
     Route: 048
     Dates: start: 20050504, end: 20050504

REACTIONS (5)
  - APATHY [None]
  - BODY TEMPERATURE INCREASED [None]
  - HEART RATE INCREASED [None]
  - LISTLESS [None]
  - MYDRIASIS [None]
